FAERS Safety Report 6731977-7 (Version None)
Quarter: 2010Q2

REPORT INFORMATION
  Report Type: 
  Country: None (occurrence: None)
  Receive Date: 20100519
  Receipt Date: 20100507
  Transmission Date: 20101027
  Serious: Yes (Other)
  Sender: FDA-Public Use
  Company Number: US-JNJFOC-20100506010

PATIENT
  Sex: Female

DRUGS (2)
  1. CHILDREN'S TYLENOL  LIQUID CHERRY BLAST [Suspect]
     Route: 048
  2. CHILDREN'S TYLENOL  LIQUID CHERRY BLAST [Suspect]
     Indication: DRUG USE FOR UNKNOWN INDICATION
     Route: 048

REACTIONS (2)
  - PRODUCT QUALITY ISSUE [None]
  - PYREXIA [None]
